FAERS Safety Report 21502347 (Version 1)
Quarter: 2022Q4

REPORT INFORMATION
  Report Type: Spontaneous
  Country: US (occurrence: None)
  Receive Date: 20221025
  Receipt Date: 20221025
  Transmission Date: 20230113
  Serious: No
  Sender: FDA-Public Use
  Company Number: 2022A334752

PATIENT
  Sex: Female

DRUGS (1)
  1. TEZSPIRE [Suspect]
     Active Substance: TEZEPELUMAB-EKKO
     Route: 065

REACTIONS (5)
  - Blood pressure abnormal [Unknown]
  - Dyspnoea [Unknown]
  - Pruritus [Unknown]
  - Fall [Unknown]
  - Rash [Unknown]
